FAERS Safety Report 19922846 (Version 2)
Quarter: 2021Q4

REPORT INFORMATION
  Report Type: Spontaneous
  Country: CN (occurrence: CN)
  Receive Date: 20211005
  Receipt Date: 20211118
  Transmission Date: 20220303
  Serious: Yes (Hospitalization, Disabling)
  Sender: FDA-Public Use
  Company Number: CN-009507513-2110CHN000521

PATIENT
  Sex: Female
  Weight: 45 kg

DRUGS (4)
  1. KEYTRUDA [Suspect]
     Active Substance: PEMBROLIZUMAB
     Indication: Neoplasm
     Dosage: DOSE: 100 MG, FREQUENCY: ONCE, D1
     Route: 041
     Dates: start: 20210909, end: 20210909
  2. PACLITAXEL [Suspect]
     Active Substance: PACLITAXEL
     Indication: Neoplasm
     Dosage: DOSE: 210 MG, FREQUENCY: ONCE, D2
     Route: 041
     Dates: start: 20210910, end: 20210910
  3. SODIUM CHLORIDE [Concomitant]
     Active Substance: SODIUM CHLORIDE
     Indication: Medication dilution
     Dosage: DOSE: 100 ML, FREQUENCY: ONCE, D1
     Route: 041
     Dates: start: 20210909, end: 20210909
  4. DEXTROSE [Concomitant]
     Active Substance: DEXTROSE
     Indication: Medication dilution
     Dosage: DOSE: 500 ML, FREQUENCY: ONCE, D2
     Route: 041
     Dates: start: 20210910, end: 20210910

REACTIONS (3)
  - White blood cell count decreased [Recovered/Resolved]
  - Neutrophil count decreased [Recovered/Resolved]
  - Underdose [Unknown]

NARRATIVE: CASE EVENT DATE: 20210909
